FAERS Safety Report 8160785-8 (Version None)
Quarter: 2012Q1

REPORT INFORMATION
  Report Type: 
  Country: None (occurrence: None)
  Receive Date: 20120223
  Receipt Date: 20120216
  Transmission Date: 20120608
  Serious: Yes (Other)
  Sender: FDA-Public Use
  Company Number: PHHY2012AR014049

PATIENT
  Sex: Male

DRUGS (2)
  1. ONBREZ [Suspect]
     Indication: NASOPHARYNGITIS
  2. ONBREZ [Suspect]
     Indication: COUGH
     Dosage: 150 MG, QD
     Dates: start: 20111001

REACTIONS (4)
  - BLOOD URIC ACID INCREASED [None]
  - PAIN IN EXTREMITY [None]
  - GOUT [None]
  - DIABETES MELLITUS [None]
